FAERS Safety Report 7372094-5 (Version None)
Quarter: 2011Q1

REPORT INFORMATION
  Report Type: 
  Country: None (occurrence: None)
  Receive Date: 20110322
  Receipt Date: 20110322
  Transmission Date: 20110831
  Serious: Yes (Disabling, Other)
  Sender: FDA-Public Use
  Company Number: None

PATIENT

DRUGS (1)
  1. REMBRANDT 2 HOUR WHITENING KIT [Suspect]
     Indication: TOOTH DISCOLOURATION
     Dosage: TOPICAL

REACTIONS (3)
  - LIP DISORDER [None]
  - CHEMICAL INJURY [None]
  - GINGIVAL DISORDER [None]
